FAERS Safety Report 9925034 (Version 2)
Quarter: 2014Q3

REPORT INFORMATION
  Report Type: Spontaneous
  Country: NL (occurrence: None)
  Receive Date: 20140221
  Receipt Date: 20140811
  Transmission Date: 20150326
  Serious: Yes (Other)
  Sender: FDA-Public Use
  Company Number: 2014NL0055

PATIENT
  Age: 60 Year
  Sex: Male

DRUGS (3)
  1. SOTALOL (SOTALOL) (SOTALOL) [Concomitant]
  2. ANAKINRA (ANAKINRA), NOT AVAILABLE [Suspect]
     Active Substance: ANAKINRA
     Indication: AUTOINFLAMMATORY DISEASE
     Route: 058
     Dates: start: 201204
  3. ANAKINRA (ANAKINRA), NOT AVAILABLE [Suspect]
     Active Substance: ANAKINRA
     Indication: PLEURISY
     Route: 058
     Dates: start: 201204

REACTIONS (2)
  - Tuberculosis [None]
  - Cough [None]

NARRATIVE: CASE EVENT DATE: 2012
